FAERS Safety Report 8618512 (Version 5)
Quarter: 2013Q4

REPORT INFORMATION
  Report Type: Report from Study
  Country: JP (occurrence: JP)
  Receive Date: 20120618
  Receipt Date: 20131115
  Transmission Date: 20140711
  Serious: Yes (Death, Hospitalization, Other)
  Sender: FDA-Public Use
  Company Number: JP-BRISTOL-MYERS SQUIBB COMPANY-14775191

PATIENT
  Age: 60 Year
  Sex: Male
  Weight: 55 kg

DRUGS (10)
  1. SPRYCEL [Suspect]
     Indication: CHRONIC MYELOID LEUKAEMIA
     Dosage: 50 MG BID 12-MAY-2009, VARIED DOSAGES TO 18-DEC-2010
     Route: 048
     Dates: start: 20090512
  2. LASIX [Concomitant]
     Route: 048
  3. ZYLORIC [Concomitant]
     Dosage: FROM UNK-22APR10;ALSO FROM 23APR10-ONG(200MG)TABS
     Route: 048
  4. URSO [Concomitant]
     Route: 048
  5. POTASSIUM ASPARTATE [Concomitant]
     Route: 048
     Dates: start: 20090626
  6. ZOPICLONE [Concomitant]
     Dosage: ALSO FROM 18FEB10-14MAR10
     Route: 048
     Dates: start: 20090520
  7. SENNOSIDE [Concomitant]
     Route: 048
     Dates: start: 20090521
  8. DIOVAN [Concomitant]
     Dosage: FROM 27JUN09-19JAN10;20JAN10-26JAN10(40MG)TABS
     Route: 048
     Dates: start: 20090627
  9. FORSENID [Concomitant]
     Dosage: TABS
     Route: 048
     Dates: start: 20100311
  10. LENDORMIN [Concomitant]
     Dosage: TABS
     Route: 048
     Dates: start: 20100315

REACTIONS (8)
  - Malignant neoplasm progression [Fatal]
  - Pleural effusion [Fatal]
  - Anaemia [Recovered/Resolved]
  - Diarrhoea [Not Recovered/Not Resolved]
  - Vomiting [Not Recovered/Not Resolved]
  - Liver disorder [Recovered/Resolved]
  - Platelet count decreased [Recovered/Resolved]
  - White blood cell count decreased [Recovered/Resolved]
